FAERS Safety Report 19173314 (Version 1)
Quarter: 2021Q2

REPORT INFORMATION
  Report Type: Spontaneous
  Country: JP (occurrence: JP)
  Receive Date: 20210423
  Receipt Date: 20210423
  Transmission Date: 20210717
  Serious: Yes (Hospitalization, Other)
  Sender: FDA-Public Use
  Company Number: JP-GLAXOSMITHKLINE-JP2021GSK083988

PATIENT
  Age: 35 Year
  Sex: Female

DRUGS (3)
  1. EPOPROSTENOL. [Suspect]
     Active Substance: EPOPROSTENOL
     Indication: PULMONARY ARTERIAL HYPERTENSION
     Dosage: UNK
     Route: 042
  2. TREPROSTINIL. [Suspect]
     Active Substance: TREPROSTINIL
     Indication: PULMONARY ARTERIAL HYPERTENSION
     Route: 058
  3. TREPROSTINIL. [Suspect]
     Active Substance: TREPROSTINIL
     Route: 042

REACTIONS (15)
  - Lymphocytic hypophysitis [Recovered/Resolved]
  - Right ventricular failure [Recovered/Resolved]
  - Adrenocorticotropic hormone deficiency [Recovered/Resolved]
  - Cyst [Unknown]
  - Pyrexia [Recovered/Resolved]
  - Depression [Recovered/Resolved]
  - Adrenal insufficiency [Recovered/Resolved]
  - Eosinophilia [Recovered/Resolved]
  - Malaise [Recovered/Resolved]
  - Jugular vein distension [Recovered/Resolved]
  - Autoimmune thyroiditis [Unknown]
  - Lymphadenopathy [Recovered/Resolved]
  - Cardiac murmur [Recovered/Resolved]
  - Decreased appetite [Recovered/Resolved]
  - Hyponatraemia [Recovered/Resolved]
